FAERS Safety Report 17152972 (Version 1)
Quarter: 2019Q4

REPORT INFORMATION
  Report Type: Spontaneous
  Country: FR (occurrence: FR)
  Receive Date: 20191213
  Receipt Date: 20191213
  Transmission Date: 20200122
  Serious: Yes (Hospitalization)
  Sender: FDA-Public Use
  Company Number: FR-MYLANLABS-2019M1122739

PATIENT
  Age: 34 Year
  Sex: Male

DRUGS (2)
  1. VALACICLOVIR MYLAN 500 MG, COMPRIM? PELLICUL? [Suspect]
     Active Substance: VALACYCLOVIR HYDROCHLORIDE
     Indication: HERPES ZOSTER
     Dosage: 1500 MILLIGRAM, QD 1-1-1
     Route: 048
     Dates: start: 20190705, end: 20190726
  2. BACTRIM [Suspect]
     Active Substance: SULFAMETHOXAZOLE\TRIMETHOPRIM
     Indication: HIDRADENITIS
     Dosage: 1 DOSAGE FORM, QD 1-0-0
     Route: 048
     Dates: start: 20190401, end: 20190726

REACTIONS (1)
  - Pancreatitis acute [Recovered/Resolved]

NARRATIVE: CASE EVENT DATE: 20190726
